FAERS Safety Report 21314294 (Version 2)
Quarter: 2022Q4

REPORT INFORMATION
  Report Type: Spontaneous
  Country: US (occurrence: US)
  Receive Date: 20220909
  Receipt Date: 20221208
  Transmission Date: 20230113
  Serious: No
  Sender: FDA-Public Use
  Company Number: US-BRISTOL-MYERS SQUIBB COMPANY-2022-100444

PATIENT
  Age: 69 Year
  Sex: Female

DRUGS (2)
  1. OPDIVO [Suspect]
     Active Substance: NIVOLUMAB
     Indication: Lung neoplasm malignant
     Dosage: STRENGTH: 120MG, 240MG VIALS
     Route: 042
     Dates: start: 20220706
  2. YERVOY [Suspect]
     Active Substance: IPILIMUMAB
     Indication: Lung neoplasm malignant
     Dosage: STRENGTH: 50MG  VIAL
     Route: 042
     Dates: start: 20220706

REACTIONS (1)
  - Rash [Unknown]

NARRATIVE: CASE EVENT DATE: 20220727
